FAERS Safety Report 9018268 (Version 1)
Quarter: 2013Q1

REPORT INFORMATION
  Report Type: Spontaneous
  Country: US (occurrence: None)
  Receive Date: 20130111
  Receipt Date: 20130111
  Transmission Date: 20140127
  Serious: Yes (Other)
  Sender: FDA-Public Use
  Company Number: None

PATIENT
  Sex: Female
  Weight: 51.71 kg

DRUGS (3)
  1. FORTEO [Suspect]
     Indication: MULTIPLE FRACTURES
     Dosage: 20 MCG DAILY SQ
     Route: 058
  2. FORTEO [Suspect]
     Indication: STRESS FRACTURE
     Dosage: 20 MCG DAILY SQ
     Route: 058
  3. ADDERALL [Concomitant]

REACTIONS (2)
  - Basal cell carcinoma [None]
  - Condition aggravated [None]
